FAERS Safety Report 8609496-2 (Version None)
Quarter: 2012Q3

REPORT INFORMATION
  Report Type: 
  Country: None (occurrence: None)
  Receive Date: 20120821
  Receipt Date: 20120808
  Transmission Date: 20120928
  Serious: No
  Sender: FDA-Public Use
  Company Number: US-ASTRAZENECA-2012SE56818

PATIENT
  Sex: Male

DRUGS (8)
  1. CLONAZEPAM [Suspect]
     Indication: ANXIETY
  2. CLONAZEPAM [Suspect]
     Indication: DEPRESSION
  3. SEROQUEL XR [Suspect]
     Indication: ANXIETY
     Route: 048
  4. ESCITALOPRAM [Suspect]
     Indication: ANXIETY
  5. TRAZODONE HYDROCHLORIDE [Suspect]
     Indication: DEPRESSION
  6. TRAZODONE HYDROCHLORIDE [Suspect]
     Indication: ANXIETY
  7. SEROQUEL XR [Suspect]
     Indication: DEPRESSION
     Route: 048
  8. ESCITALOPRAM [Suspect]
     Indication: DEPRESSION

REACTIONS (8)
  - PARANOIA [None]
  - MEMORY IMPAIRMENT [None]
  - MENTAL IMPAIRMENT [None]
  - HALLUCINATION, AUDITORY [None]
  - FORMICATION [None]
  - EXTRASYSTOLES [None]
  - THINKING ABNORMAL [None]
  - ANXIETY [None]
